FAERS Safety Report 8165709-5 (Version None)
Quarter: 2012Q1

REPORT INFORMATION
  Report Type: 
  Country: None (occurrence: None)
  Receive Date: 20120227
  Receipt Date: 20110822
  Transmission Date: 20120608
  Serious: No
  Sender: FDA-Public Use
  Company Number: US-MYLANLABS-2010S1013817

PATIENT
  Age: 38 Year
  Sex: Female
  Weight: 63.5 kg

DRUGS (3)
  1. AMNESTEEM [Suspect]
     Route: 048
     Dates: start: 20100326, end: 20100724
  2. AMNESTEEM [Suspect]
     Indication: ACNE CYSTIC
     Route: 048
     Dates: start: 20100326, end: 20100724
  3. ALBUTEROL [Concomitant]
     Indication: ASTHMA

REACTIONS (3)
  - DRY SKIN [None]
  - ARTHRALGIA [None]
  - BACK PAIN [None]
